FAERS Safety Report 18134114 (Version 6)
Quarter: 2020Q4

REPORT INFORMATION
  Report Type: Spontaneous
  Country: US (occurrence: US)
  Receive Date: 20200811
  Receipt Date: 20201218
  Transmission Date: 20210113
  Serious: No
  Sender: FDA-Public Use
  Company Number: US-PFIZER INC-2020021386

PATIENT
  Age: 78 Year
  Sex: Female
  Weight: 113.4 kg

DRUGS (3)
  1. FLECTOR [Suspect]
     Active Substance: DICLOFENAC EPOLAMINE
     Dosage: 1 DF, 2X/DAY (ONE PATCH APPLIED EVERY 12 HOURS)
     Route: 062
  2. FLECTOR [Suspect]
     Active Substance: DICLOFENAC EPOLAMINE
     Indication: ARTHRITIS
     Dosage: 1 DF, 2X/DAY (ONE PATCH APPLIED EVERY 12 HOURS)
     Route: 062
     Dates: start: 2019
  3. FLECTOR [Suspect]
     Active Substance: DICLOFENAC EPOLAMINE
     Dosage: UNK
     Route: 062

REACTIONS (6)
  - Drug effective for unapproved indication [Unknown]
  - Application site pruritus [Unknown]
  - Off label use [Unknown]
  - Product complaint [Unknown]
  - Wrong technique in product usage process [Unknown]
  - Product use in unapproved indication [Unknown]

NARRATIVE: CASE EVENT DATE: 2019
